FAERS Safety Report 7335738-X (Version None)
Quarter: 2011Q1

REPORT INFORMATION
  Report Type: 
  Country: None (occurrence: None)
  Receive Date: 20110307
  Receipt Date: 20110223
  Transmission Date: 20110831
  Serious: Yes (Life-Threatening)
  Sender: FDA-Public Use
  Company Number: B0703815A

PATIENT
  Sex: Male
  Weight: 50 kg

DRUGS (7)
  1. FUROSEMIDE [Concomitant]
     Indication: RENAL IMPAIRMENT
     Dosage: 20MG PER DAY
     Route: 048
  2. NITOROL R [Concomitant]
     Indication: ANGINA PECTORIS
     Route: 048
     Dates: end: 20100406
  3. SERETIDE [Suspect]
     Indication: CHRONIC OBSTRUCTIVE PULMONARY DISEASE
     Dosage: 500MCG PER DAY
     Route: 055
     Dates: start: 20091124, end: 20091128
  4. MEPTIN [Concomitant]
     Indication: CHRONIC OBSTRUCTIVE PULMONARY DISEASE
     Route: 048
     Dates: start: 20100405
  5. NORVASC [Concomitant]
     Indication: HYPERTENSION
     Dosage: 2.5MG PER DAY
     Route: 048
  6. SIGMART [Concomitant]
     Indication: ANGINA PECTORIS
     Dosage: 10MG PER DAY
     Route: 048
  7. ASPIRIN [Concomitant]
     Indication: ANGINA PECTORIS
     Dosage: 100MG PER DAY
     Route: 048

REACTIONS (1)
  - PNEUMONIA BACTERIAL [None]
